FAERS Safety Report 15952577 (Version 1)
Quarter: 2019Q1

REPORT INFORMATION
  Report Type: Spontaneous
  Country: US (occurrence: US)
  Receive Date: 20190212
  Receipt Date: 20190212
  Transmission Date: 20190417
  Serious: No
  Sender: FDA-Public Use
  Company Number: US-PFIZER INC-2019055748

PATIENT
  Age: 80 Year
  Sex: Male
  Weight: 100.7 kg

DRUGS (1)
  1. EUCRISA [Suspect]
     Active Substance: CRISABOROLE
     Indication: PSORIASIS
     Dosage: UNK, 2X/DAY

REACTIONS (3)
  - Drug ineffective for unapproved indication [Unknown]
  - Peripheral swelling [Not Recovered/Not Resolved]
  - Rash generalised [Not Recovered/Not Resolved]
